FAERS Safety Report 23033119 (Version 1)
Quarter: 2023Q4

REPORT INFORMATION
  Report Type: Spontaneous
  Country: US (occurrence: None)
  Receive Date: 20231004
  Receipt Date: 20231004
  Transmission Date: 20240110
  Serious: Yes (Life-Threatening, Disabling)
  Sender: FDA-Public Use
  Company Number: None

PATIENT
  Age: 26 Year
  Sex: Female
  Weight: 49.5 kg

DRUGS (4)
  1. .DELTA.8-TETRAHYDROCANNABINOL\HERBALS [Suspect]
     Active Substance: .DELTA.8-TETRAHYDROCANNABINOL\HERBALS
     Indication: Product used for unknown indication
     Dates: start: 20231004, end: 20231004
  2. LIONS MANE [Concomitant]
  3. MAGNESIUM [Concomitant]
     Active Substance: MAGNESIUM
  4. BLACK SEED OIL [Concomitant]

REACTIONS (12)
  - Liquid product physical issue [None]
  - Suspected product tampering [None]
  - Tremor [None]
  - Vomiting [None]
  - Hyperhidrosis [None]
  - Hallucination [None]
  - Ear discomfort [None]
  - Feeling abnormal [None]
  - Dysstasia [None]
  - Dizziness [None]
  - Suspected product contamination [None]
  - Suspected counterfeit product [None]

NARRATIVE: CASE EVENT DATE: 20231004
